FAERS Safety Report 10355330 (Version 1)
Quarter: 2014Q3

REPORT INFORMATION
  Report Type: Spontaneous
  Country: US (occurrence: None)
  Receive Date: 20140729
  Receipt Date: 20140729
  Transmission Date: 20150326
  Serious: Yes (Hospitalization)
  Sender: FDA-Public Use
  Company Number: US-001111

PATIENT
  Sex: Female

DRUGS (1)
  1. GATTEX [Suspect]
     Active Substance: TEDUGLUTIDE\WATER
     Indication: SHORT-BOWEL SYNDROME
     Dosage: DF
     Route: 058
     Dates: start: 20140625

REACTIONS (5)
  - Peripheral swelling [None]
  - Pyrexia [None]
  - Chills [None]
  - Device related infection [None]
  - Injection site reaction [None]

NARRATIVE: CASE EVENT DATE: 2014
